FAERS Safety Report 20222095 (Version 5)
Quarter: 2022Q1

REPORT INFORMATION
  Report Type: Report from Study
  Country: JP (occurrence: JP)
  Receive Date: 20211223
  Receipt Date: 20220322
  Transmission Date: 20220424
  Serious: Yes (Hospitalization)
  Sender: FDA-Public Use
  Company Number: JP-SEATTLE GENETICS-2021SGN06344

PATIENT
  Age: 80 Year
  Sex: Male
  Weight: 57.3 kg

DRUGS (19)
  1. TUCATINIB [Suspect]
     Active Substance: TUCATINIB
     Indication: Neoplasm
     Dosage: 300 MG, BID
     Route: 048
     Dates: start: 20210818, end: 20220125
  2. TRASTUZUMAB [Suspect]
     Active Substance: TRASTUZUMAB
     Indication: Neoplasm
     Dosage: 6 MG/KG OVER 30 MINUTES ON DAY 1 OF EACH CYCLE
     Route: 042
     Dates: end: 20220125
  3. TRASTUZUMAB [Suspect]
     Active Substance: TRASTUZUMAB
     Dosage: 8 MG/KG OVER 90 MINUTES ON DAY 1 CYCLE 1
     Route: 042
     Dates: start: 20210818, end: 20210818
  4. AVELOX [Concomitant]
     Active Substance: MOXIFLOXACIN HYDROCHLORIDE
     Indication: Bronchitis
     Dosage: 400 MG, QD
     Dates: start: 20211201, end: 20211208
  5. BISOPROLOL FUMARATE [Concomitant]
     Active Substance: BISOPROLOL FUMARATE
     Indication: Hypertension
     Dosage: 0.625 MG, QD
     Dates: start: 2001, end: 20220224
  6. NIFEDIPINE [Concomitant]
     Active Substance: NIFEDIPINE
     Indication: Hypertension
     Dosage: 80 MG, QD
     Dates: start: 2001
  7. TRICHLORMETHIAZIDE [Concomitant]
     Active Substance: TRICHLORMETHIAZIDE
     Indication: Hypertension
     Dosage: 2 MG, QD
     Dates: start: 2001, end: 20220216
  8. LANSOPRAZOLE [Concomitant]
     Active Substance: LANSOPRAZOLE
     Indication: Prophylaxis
     Dosage: 15 MG, QD
     Dates: start: 2001
  9. FEBUXOSTAT [Concomitant]
     Active Substance: FEBUXOSTAT
     Indication: Hyperuricaemia
     Dosage: 10 MG, QD
     Dates: start: 2003
  10. HEPARINOID [Concomitant]
     Indication: Prophylaxis
     Dosage: UNK; APPROPRIATE AMOUNT
     Dates: start: 20210513
  11. HYALURONATE SODIUM [Concomitant]
     Active Substance: HYALURONATE SODIUM
     Indication: Prophylaxis
     Dosage: UNK; APPROPRIATE AMOUNT
     Dates: start: 20191115
  12. SENNOSIDES A AND B [Concomitant]
     Active Substance: SENNOSIDES A AND B
     Indication: Constipation prophylaxis
     Dosage: 24 MG, QD
     Dates: start: 20210811
  13. FUROSEMIDE [Concomitant]
     Active Substance: FUROSEMIDE
     Indication: Pulmonary oedema
     Dosage: 20 MG, QD
     Dates: start: 20210909, end: 20220220
  14. URSODIOL [Concomitant]
     Active Substance: URSODIOL
     Indication: Alanine aminotransferase increased
     Dosage: 300 MG, QD
     Dates: start: 20210929
  15. GLYCYRON [GLYCYRRHIZIC ACID, AMMONIUM SALT] [Concomitant]
     Indication: Alanine aminotransferase increased
     Dosage: 6 TAB, QD
     Dates: start: 20210929
  16. SODIUM FERROUS CITRATE [Concomitant]
     Active Substance: SODIUM FERROUS CITRATE
     Indication: Anaemia
     Dosage: 100 MG, QD
     Dates: start: 20210901
  17. DIPHENHYDRAMINE [Concomitant]
     Active Substance: DIPHENHYDRAMINE
     Indication: Prophylaxis
     Dosage: APPROPRIATE AMOUNT
     Dates: start: 20211027, end: 20211216
  18. DOXAZOSIN MESYLATE [Concomitant]
     Active Substance: DOXAZOSIN MESYLATE
     Indication: Hypertension
     Dosage: 4 MG, QD
     Dates: start: 2001
  19. WHITE PETROLATUM [Concomitant]
     Active Substance: PETROLATUM
     Dosage: UNK
     Dates: start: 20210901

REACTIONS (1)
  - Pulmonary toxicity [Recovering/Resolving]

NARRATIVE: CASE EVENT DATE: 20211209
